FAERS Safety Report 18196447 (Version 1)
Quarter: 2020Q3

REPORT INFORMATION
  Report Type: Spontaneous
  Country: US (occurrence: US)
  Receive Date: 20200825
  Receipt Date: 20200825
  Transmission Date: 20201103
  Serious: Yes (Hospitalization)
  Sender: FDA-Public Use
  Company Number: None

PATIENT
  Age: 48 Year
  Sex: Male

DRUGS (5)
  1. ENBREL [Suspect]
     Active Substance: ETANERCEPT
     Indication: PRODUCT USED FOR UNKNOWN INDICATION
     Dosage: ?          OTHER FREQUENCY:ONCE A WEEK;?
     Route: 058
     Dates: start: 20191218
  2. ASPIRIN. [Concomitant]
     Active Substance: ASPIRIN
  3. ATORVASATIN [Concomitant]
  4. BRILINTA [Concomitant]
     Active Substance: TICAGRELOR
  5. CARVEDILOL. [Concomitant]
     Active Substance: CARVEDILOL

REACTIONS (4)
  - Myocardial infarction [None]
  - Rash [None]
  - Eye irritation [None]
  - Swelling of eyelid [None]

NARRATIVE: CASE EVENT DATE: 20200608
